FAERS Safety Report 7642808-5 (Version None)
Quarter: 2011Q3

REPORT INFORMATION
  Report Type: 
  Country: None (occurrence: None)
  Receive Date: 20110728
  Receipt Date: 20110719
  Transmission Date: 20111222
  Serious: Yes (Other)
  Sender: FDA-Public Use
  Company Number: US-ABBOTT-11P-163-0840381-00

PATIENT
  Age: 30 Year
  Sex: Female

DRUGS (6)
  1. HUMIRA [Suspect]
     Indication: PRODUCT USED FOR UNKNOWN INDICATION
  2. ENBREL [Suspect]
     Indication: PRODUCT USED FOR UNKNOWN INDICATION
  3. GOLIMUMAB [Suspect]
     Indication: PRODUCT USED FOR UNKNOWN INDICATION
     Dates: start: 20100901
  4. ARAVA [Suspect]
     Indication: PRODUCT USED FOR UNKNOWN INDICATION
  5. PREDNISONE [Suspect]
     Indication: PRODUCT USED FOR UNKNOWN INDICATION
  6. PLAQUENIL [Suspect]
     Indication: PRODUCT USED FOR UNKNOWN INDICATION
     Dates: start: 20100101

REACTIONS (11)
  - HAIR COLOUR CHANGES [None]
  - FATIGUE [None]
  - RHEUMATOID ARTHRITIS [None]
  - DRUG HYPERSENSITIVITY [None]
  - ADVERSE DRUG REACTION [None]
  - MYALGIA [None]
  - HAIR TEXTURE ABNORMAL [None]
  - EMOTIONAL DISORDER [None]
  - ABDOMINAL DISCOMFORT [None]
  - DRUG INEFFECTIVE [None]
  - INJECTION RELATED REACTION [None]
